FAERS Safety Report 14764763 (Version 4)
Quarter: 2018Q2

REPORT INFORMATION
  Report Type: Spontaneous
  Country: CA (occurrence: CA)
  Receive Date: 20180416
  Receipt Date: 20180510
  Transmission Date: 20180711
  Serious: Yes (Other)
  Sender: FDA-Public Use
  Company Number: CA-PFIZER INC-2018154223

PATIENT
  Age: 39 Year
  Sex: Female

DRUGS (4)
  1. CYMBALTA [Concomitant]
     Active Substance: DULOXETINE HYDROCHLORIDE
  2. CELEBREX [Suspect]
     Active Substance: CELECOXIB
     Dosage: UNK
     Dates: start: 201309, end: 20141203
  3. MEZAVANT [Concomitant]
     Active Substance: MESALAMINE
  4. NAPROSYN [Suspect]
     Active Substance: NAPROXEN
     Dosage: UNK
     Dates: start: 201412, end: 201503

REACTIONS (5)
  - Fatigue [Recovered/Resolved]
  - Drug intolerance [Unknown]
  - Pain [Recovered/Resolved]
  - Pharyngitis streptococcal [Unknown]
  - Crohn^s disease [Unknown]

NARRATIVE: CASE EVENT DATE: 20180410
